FAERS Safety Report 7764512-5 (Version None)
Quarter: 2011Q3

REPORT INFORMATION
  Report Type: 
  Country: None (occurrence: None)
  Receive Date: 20110921
  Receipt Date: 20110331
  Transmission Date: 20111222
  Serious: No
  Sender: FDA-Public Use
  Company Number: US-BAYER-2011-029182

PATIENT
  Age: 52 Year
  Sex: Male
  Weight: 102.4 kg

DRUGS (1)
  1. ALEVE (CAPLET) [Suspect]
     Indication: PAIN
     Dosage: 3 UNITS ONCE
     Route: 048
     Dates: start: 20110331

REACTIONS (1)
  - NO ADVERSE EVENT [None]
